FAERS Safety Report 5879622-7 (Version None)
Quarter: 2008Q3

REPORT INFORMATION
  Report Type: 
  Country: None (occurrence: None)
  Receive Date: 20080912
  Receipt Date: 20080903
  Transmission Date: 20090109
  Serious: Yes (Other)
  Sender: FDA-Public Use
  Company Number: CN-ASTRAZENECA-2008AP06918

PATIENT
  Age: 26 Year
  Sex: Male
  Weight: 60 kg

DRUGS (3)
  1. ROPIVACAINE [Suspect]
     Indication: SURGERY
     Route: 065
  2. PHENOBARBITAL SODIUM 100MG CAP [Suspect]
     Indication: SURGERY
     Route: 030
  3. ATROPINE [Suspect]
     Indication: SURGERY
     Route: 030

REACTIONS (9)
  - BLOOD PRESSURE DECREASED [None]
  - DRUG HYPERSENSITIVITY [None]
  - DYSPHORIA [None]
  - HEART RATE INCREASED [None]
  - HYPOAESTHESIA ORAL [None]
  - INCREASED UPPER AIRWAY SECRETION [None]
  - OEDEMA PERIPHERAL [None]
  - OXYGEN SATURATION DECREASED [None]
  - SENSATION OF FOREIGN BODY [None]
